FAERS Safety Report 23330468 (Version 1)
Quarter: 2023Q4

REPORT INFORMATION
  Report Type: Spontaneous
  Country: NL (occurrence: NL)
  Receive Date: 20231222
  Receipt Date: 20231222
  Transmission Date: 20240110
  Serious: Yes (Hospitalization)
  Sender: FDA-Public Use
  Company Number: None

PATIENT
  Age: 61 Year
  Sex: Female
  Weight: 76 kg

DRUGS (1)
  1. CAPECITABINE [Suspect]
     Active Substance: CAPECITABINE
     Indication: Colon cancer
     Dosage: 2 X PER DAY 1 PIECE, 6 CYCLES OF 21 DAYS, TABLET FO 500 MG
     Dates: start: 20230714, end: 20231118

REACTIONS (1)
  - Arteriospasm coronary [Recovered/Resolved]
